FAERS Safety Report 8555502-3 (Version None)
Quarter: 2012Q3

REPORT INFORMATION
  Report Type: 
  Country: None (occurrence: None)
  Receive Date: 20120731
  Receipt Date: 20110912
  Transmission Date: 20120928
  Serious: No
  Sender: FDA-Public Use
  Company Number: US-ASTRAZENECA-2011SE06154

PATIENT
  Age: 53 Year
  Sex: Female
  Weight: 65.8 kg

DRUGS (4)
  1. XANAX [Concomitant]
     Dosage: DAILY
  2. CELEXA [Concomitant]
     Dosage: DAILY
  3. SEROQUEL XR [Suspect]
     Indication: DEPRESSION
     Route: 048
     Dates: start: 20110101
  4. TEMAZEPAM [Concomitant]
     Indication: SLEEP DISORDER
     Dosage: AS REQUIRED

REACTIONS (7)
  - DRUG DOSE OMISSION [None]
  - DYSKINESIA [None]
  - UPPER RESPIRATORY TRACT CONGESTION [None]
  - CONSTIPATION [None]
  - WEIGHT INCREASED [None]
  - INSOMNIA [None]
  - THROAT IRRITATION [None]
